FAERS Safety Report 25832508 (Version 1)
Quarter: 2025Q3

REPORT INFORMATION
  Report Type: Spontaneous
  Country: US (occurrence: US)
  Receive Date: 20250922
  Receipt Date: 20250922
  Transmission Date: 20251021
  Serious: No
  Sender: BAYER HEALTHCARE LLC
  Company Number: US-BAYER-2025A124852

PATIENT
  Age: 74 Year
  Sex: Female

DRUGS (1)
  1. MIRALAX [Suspect]
     Active Substance: POLYETHYLENE GLYCOL 3350
     Indication: Constipation
     Route: 048

REACTIONS (2)
  - Product taste abnormal [Not Recovered/Not Resolved]
  - Extra dose administered [None]

NARRATIVE: CASE EVENT DATE: 20250918
